FAERS Safety Report 24694825 (Version 1)
Quarter: 2024Q4

REPORT INFORMATION
  Report Type: Spontaneous
  Country: TW (occurrence: TW)
  Receive Date: 20241204
  Receipt Date: 20241204
  Transmission Date: 20250114
  Serious: Yes (Death, Life-Threatening, Other)
  Sender: GLAND PHARMA LTD
  Company Number: TW-GLANDPHARMA-TW-2024GLNLIT01047

PATIENT
  Age: 52 Year
  Sex: Female

DRUGS (18)
  1. OXALIPLATIN [Suspect]
     Active Substance: OXALIPLATIN
     Indication: Colon cancer
     Dosage: 12 CYCLES OF FOLFOX
     Route: 065
  2. OXALIPLATIN [Suspect]
     Active Substance: OXALIPLATIN
     Dosage: 06 CYCLES OF AVASTIN-FOLFIRI
     Route: 065
  3. OXALIPLATIN [Suspect]
     Active Substance: OXALIPLATIN
     Dosage: 3 CYCLES OF ERBITUX FOLFIRI
     Route: 065
  4. LEUCOVORIN [Concomitant]
     Active Substance: LEUCOVORIN\LEUCOVORIN CALCIUM
     Dosage: 12 CYCLES OF FOLFOX CHEMOTHERAPY
     Route: 065
  5. LEUCOVORIN [Concomitant]
     Active Substance: LEUCOVORIN\LEUCOVORIN CALCIUM
     Dosage: 3 CYCLES OF ERBITUX-FOLFIRI
     Route: 065
  6. LEUCOVORIN [Concomitant]
     Active Substance: LEUCOVORIN\LEUCOVORIN CALCIUM
     Dosage: 6 CYCLES OF AVASTIN-FOLFIRI
     Route: 065
  7. FLUOROURACIL [Concomitant]
     Active Substance: FLUOROURACIL
     Dosage: 12 CYCLES OF FOLFOX CHEMOTHERAPY
     Route: 065
  8. FLUOROURACIL [Concomitant]
     Active Substance: FLUOROURACIL
     Dosage: 6 CYCLES OF AVASTIN-FOLFIRI
     Route: 065
  9. FLUOROURACIL [Concomitant]
     Active Substance: FLUOROURACIL
     Dosage: 3 CYCLES OF ERBITUX-FOLFIRI
     Route: 065
  10. IRINOTECAN [Concomitant]
     Active Substance: IRINOTECAN
     Dosage: 6 CYCLES OF AVASTIN-FOLFIRI
     Route: 065
  11. IRINOTECAN [Concomitant]
     Active Substance: IRINOTECAN
     Dosage: 3 CYCLES OF ERBITUX-FOLFIRI
     Route: 065
  12. BEVACIZUMAB [Concomitant]
     Active Substance: BEVACIZUMAB
     Dosage: 6 CYCLES OF AVASTIN-FOLFIRI
     Route: 065
  13. CETUXIMAB [Concomitant]
     Active Substance: CETUXIMAB
     Dosage: 3 CYCLES OF ERBITUX-FOLFIRI
     Route: 065
  14. EPINEPHRINE [Concomitant]
     Active Substance: EPINEPHRINE
     Indication: Bradycardia
     Route: 042
  15. EPINEPHRINE [Concomitant]
     Active Substance: EPINEPHRINE
     Indication: Hypotension
  16. REGORAFENIB [Concomitant]
     Active Substance: REGORAFENIB
     Route: 048
  17. PEMBROLIZUMAB [Concomitant]
     Active Substance: PEMBROLIZUMAB
     Indication: Immunosuppression
     Route: 065
  18. PEMBROLIZUMAB [Concomitant]
     Active Substance: PEMBROLIZUMAB
     Indication: Colorectal cancer

REACTIONS (4)
  - Multiple organ dysfunction syndrome [Fatal]
  - Pneumonia [Fatal]
  - Abdominal compartment syndrome [Unknown]
  - Pneumothorax [Unknown]
